FAERS Safety Report 12190301 (Version 2)
Quarter: 2016Q1

REPORT INFORMATION
  Report Type: Other
  Country: HR (occurrence: HR)
  Receive Date: 20160318
  Receipt Date: 20160325
  Transmission Date: 20160526
  Serious: Yes (Death, Other)
  Sender: FDA-Public Use
  Company Number: HR-ASTELLAS-2016US010144

PATIENT
  Age: 57 Year
  Sex: Female

DRUGS (3)
  1. ALEMTUZUMAB [Suspect]
     Active Substance: ALEMTUZUMAB
     Indication: IMMUNOSUPPRESSANT DRUG THERAPY
     Dosage: UNK UNK, UNKNOWN FREQ.
     Route: 065
  2. TACROLIMUS SYSTEMIC [Suspect]
     Active Substance: TACROLIMUS
     Indication: IMMUNOSUPPRESSANT DRUG THERAPY
  3. TACROLIMUS SYSTEMIC [Suspect]
     Active Substance: TACROLIMUS
     Indication: LUNG TRANSPLANT
     Dosage: UNK UNK, UNKNOWN FREQ.
     Route: 065

REACTIONS (11)
  - Off label use [Unknown]
  - Pleural effusion [Unknown]
  - Apathy [Unknown]
  - Septic shock [Fatal]
  - Bronchiectasis [Unknown]
  - Mycobacterium abscessus infection [Recovered/Resolved]
  - Depression [Unknown]
  - Multiple organ dysfunction syndrome [Fatal]
  - Haemothorax [Unknown]
  - Pneumonia pseudomonal [Unknown]
  - General physical health deterioration [Unknown]
